FAERS Safety Report 5028747-7 (Version None)
Quarter: 2006Q2

REPORT INFORMATION
  Report Type: 
  Country: None (occurrence: None)
  Receive Date: 20060501
  Receipt Date: 20060120
  Transmission Date: 20061013
  Serious: No
  Sender: FDA-Public Use
  Company Number: 200610795US

PATIENT
  Age: 50 Year
  Sex: Female
  Weight: 102.27 kg

DRUGS (7)
  1. KETEK [Suspect]
     Indication: RESPIRATORY TRACT INFECTION
     Dosage: PO
     Route: 048
     Dates: start: 20060112, end: 20060117
  2. MEDROXYPROGESTERONE ACETATE [Concomitant]
  3. ESTROGENS CONJUGATED (PREMPRO) [Concomitant]
  4. SULFAMETHOXAZOLE [Concomitant]
  5. TRIMETHOPRIM (BACTRIM) [Concomitant]
  6. CEFTRIAXONE SODIUM (ROCEPHIN) [Concomitant]
  7. METHYLPREDNISOLONE SODIUM SUCCINATE (SOLU-MEDROL) [Concomitant]

REACTIONS (1)
  - VISION BLURRED [None]
